FAERS Safety Report 18692819 (Version 1)
Quarter: 2021Q1

REPORT INFORMATION
  Report Type: Spontaneous
  Country: US (occurrence: US)
  Receive Date: 20210104
  Receipt Date: 20210104
  Transmission Date: 20210419
  Serious: Yes (Other)
  Sender: FDA-Public Use
  Company Number: US-SA-2020SA377277

PATIENT

DRUGS (1)
  1. ZANTAC [Suspect]
     Active Substance: RANITIDINE HYDROCHLORIDE
     Dosage: FREQUENCY: OTHER
     Dates: start: 2002, end: 2007

REACTIONS (1)
  - Haematological malignancy [Unknown]

NARRATIVE: CASE EVENT DATE: 20120601
